FAERS Safety Report 25256320 (Version 3)
Quarter: 2025Q2

REPORT INFORMATION
  Report Type: Spontaneous
  Country: US (occurrence: US)
  Receive Date: 20250430
  Receipt Date: 20250630
  Transmission Date: 20250716
  Serious: Yes (Hospitalization)
  Sender: BRISTOL-MYERS SQUIBB COMPANY
  Company Number: US-BRISTOL-MYERS SQUIBB COMPANY-2025-061284

PATIENT
  Age: 83 Year
  Sex: Female

DRUGS (3)
  1. LENALIDOMIDE [Suspect]
     Active Substance: LENALIDOMIDE
     Indication: Plasma cell myeloma refractory
     Dosage: TAKE 1 CAPSULE BY MOUTH EVERY OTHER DAY FOR 21 DAYS THEN 7 DAYS OFF IN A 28 DAY CYCLE AS PER TREATME
     Route: 048
  2. LENALIDOMIDE [Suspect]
     Active Substance: LENALIDOMIDE
     Indication: Breast cancer female
     Dosage: TAKE 1 CAPSULE BY MOUTH EVERY OTHER DAY FOR 21 DAYS THEN 7 DAYS OFF IN A 28 DAY CYCLE AS PER TREATME
     Route: 048
  3. LENALIDOMIDE [Suspect]
     Active Substance: LENALIDOMIDE
     Dosage: TAKE 1 CAPSULE BY MOUTH EVERY OTHER DAY FOR 21 DAYS THEN 7 DAYS OFF IN A 28 DAY CYCLE AS PER TREATME
     Route: 048

REACTIONS (6)
  - COVID-19 [Recovering/Resolving]
  - Pollakiuria [Not Recovered/Not Resolved]
  - Sleep disorder [Not Recovered/Not Resolved]
  - Product supply issue [Unknown]
  - Product prescribing issue [Unknown]
  - Therapy interrupted [Unknown]
